FAERS Safety Report 5005673-0 (Version None)
Quarter: 2006Q2

REPORT INFORMATION
  Report Type: 
  Country: None (occurrence: None)
  Receive Date: 20060515
  Receipt Date: 20060427
  Transmission Date: 20061013
  Serious: Yes (Hospitalization)
  Sender: FDA-Public Use
  Company Number: 224700

PATIENT
  Age: 55 Year
  Sex: Female
  Weight: 65.9984 kg

DRUGS (4)
  1. AVASTIN [Suspect]
     Indication: BREAST CANCER
     Dosage: 5 MG/KG INTRAVENOUS
     Route: 042
     Dates: start: 20060101, end: 20060201
  2. PACLITAXEL [Suspect]
     Indication: BREAST CANCER
     Dosage: `120 MG 1/WEEK INTRAVENOUS
     Route: 042
     Dates: start: 20060101, end: 20060201
  3. LEUCOVORIN CALCIUM [Suspect]
     Indication: COLON CANCER
     Dosage: 300 MG 4/MONTH INTRAVENOUS
     Route: 042
     Dates: start: 20060111
  4. FLUOROURACIL [Suspect]
     Indication: COLON CANCER
     Dosage: 570 MG 4/MONTH IV BOLUS
     Route: 040
     Dates: start: 20060111

REACTIONS (1)
  - DERMATITIS EXFOLIATIVE [None]
